FAERS Safety Report 7736313-5 (Version None)
Quarter: 2011Q3

REPORT INFORMATION
  Report Type: 
  Country: None (occurrence: None)
  Receive Date: 20110908
  Receipt Date: 20110829
  Transmission Date: 20111222
  Serious: Yes (Death, Other)
  Sender: FDA-Public Use
  Company Number: JP-GENZYME-THYM-1002732

PATIENT
  Sex: Male
  Weight: 12 kg

DRUGS (13)
  1. HYDROXYZINE HYDROCHLORIDE [Concomitant]
     Indication: PREMEDICATION
     Dosage: UNK
     Route: 065
     Dates: start: 20110512, end: 20110513
  2. SULFAMETHOXAZOLE W [Concomitant]
     Indication: ANTIFUNGAL PROPHYLAXIS
     Dosage: UNK
     Route: 065
     Dates: start: 20091009, end: 20110521
  3. ETOPOSIDE [Concomitant]
     Indication: NEUROBLASTOMA
     Dosage: UNK
     Route: 065
     Dates: start: 20110511, end: 20110515
  4. SULPYRINE [Concomitant]
     Indication: PREMEDICATION
     Dosage: UNK
     Route: 065
     Dates: start: 20110512, end: 20110513
  5. FLUDARA [Concomitant]
     Indication: NEUROBLASTOMA
     Dosage: UNK
     Route: 065
     Dates: start: 20110511, end: 20110515
  6. URSODIOL [Concomitant]
     Indication: PROPHYLAXIS
     Dosage: UNK
     Route: 065
     Dates: start: 20110510, end: 20110521
  7. BUSULFAN [Concomitant]
     Indication: NEUROBLASTOMA
     Dosage: UNK
     Route: 065
     Dates: start: 20110514, end: 20110517
  8. DALTEPARIN SODIUM [Concomitant]
     Indication: THROMBOSIS PROPHYLAXIS
     Dosage: UNK
     Route: 065
     Dates: start: 20110510, end: 20110521
  9. ALPROSTADIL [Concomitant]
     Indication: THROMBOSIS PROPHYLAXIS
     Dosage: UNK
     Route: 065
     Dates: start: 20110510, end: 20110526
  10. METHYLPREDNISOLONE SODIUM SUCCINATE [Concomitant]
     Indication: PREMEDICATION
     Dosage: UNK
     Route: 065
     Dates: start: 20110512, end: 20110513
  11. THYMOGLOBULIN [Suspect]
     Indication: BONE MARROW CONDITIONING REGIMEN
     Dosage: 30.0 MG/DAY, QD
     Route: 042
     Dates: start: 20110512, end: 20110513
  12. MELPHALAN [Concomitant]
     Indication: NEUROBLASTOMA
     Dosage: UNK
     Route: 065
     Dates: start: 20110511, end: 20110516
  13. LEVOFLOXACIN [Concomitant]
     Indication: ANTIBIOTIC PROPHYLAXIS
     Dosage: UNK
     Route: 065
     Dates: start: 20110510, end: 20110521

REACTIONS (5)
  - CARDIAC FAILURE [None]
  - ENGRAFT FAILURE [None]
  - RESPIRATORY FAILURE [None]
  - RENAL FAILURE [None]
  - STAPHYLOCOCCAL SEPSIS [None]
